FAERS Safety Report 4914450-8 (Version None)
Quarter: 2006Q1

REPORT INFORMATION
  Report Type: 
  Country: None (occurrence: None)
  Receive Date: 20060113
  Receipt Date: 20051012
  Transmission Date: 20060701
  Serious: No
  Sender: FDA-Public Use
  Company Number: 2005SP002307

PATIENT
  Age: 43 Year
  Sex: Male
  Weight: 74.8435 kg

DRUGS (4)
  1. LUNESTA [Suspect]
     Indication: INSOMNIA
     Dosage: 2 MG;HS;ORAL
     Route: 048
     Dates: start: 20050805
  2. VITAMINS [Concomitant]
  3. TRICOR [Concomitant]
  4. SEROQUEL [Concomitant]

REACTIONS (2)
  - DRY MOUTH [None]
  - DYSGEUSIA [None]
